FAERS Safety Report 10486778 (Version 1)
Quarter: 2014Q4

REPORT INFORMATION
  Report Type: Spontaneous
  Country: GB (occurrence: GB)
  Receive Date: 20141001
  Receipt Date: 20141001
  Transmission Date: 20150528
  Serious: Yes (Other)
  Sender: FDA-Public Use
  Company Number: GB-TEVA-511126ISR

PATIENT
  Age: 71 Year
  Sex: Male
  Weight: 67.2 kg

DRUGS (50)
  1. ALENDRONIC ACID [Concomitant]
     Active Substance: ALENDRONIC ACID
     Dates: start: 20140814, end: 20140814
  2. COCODAMOL [Concomitant]
     Active Substance: ACETAMINOPHEN\CODEINE PHOSPHATE
     Dates: start: 20140519
  3. LEVOTHYROXINE [Concomitant]
     Active Substance: LEVOTHYROXINE
     Dates: start: 20140619, end: 20140619
  4. OXYTETRACYCLINE [Concomitant]
     Active Substance: OXYTETRACYCLINE
     Dates: start: 20140731, end: 20140801
  5. ALLOPURINOL. [Concomitant]
     Active Substance: ALLOPURINOL
     Dates: start: 20140714, end: 20140714
  6. AMITRIPTYLINE HYDROCHLORIDE. [Concomitant]
     Active Substance: AMITRIPTYLINE HYDROCHLORIDE
     Dates: start: 20140814, end: 20140814
  7. BETAHISTINE [Concomitant]
     Active Substance: BETAHISTINE
     Dates: start: 20140814, end: 20140814
  8. LEVOTHYROXINE [Concomitant]
     Active Substance: LEVOTHYROXINE
     Dates: start: 20140814, end: 20140814
  9. LORATADINE. [Concomitant]
     Active Substance: LORATADINE
     Dates: start: 20140911
  10. ORAMORPH SR SUSTAINED RELEASE [Concomitant]
     Active Substance: MORPHINE SULFATE
     Dates: start: 20140714, end: 20140715
  11. TAMSULOSIN HYDROCHLORIDE. [Concomitant]
     Active Substance: TAMSULOSIN HYDROCHLORIDE
     Dates: start: 20140519
  12. TERBINAFINE [Concomitant]
     Active Substance: TERBINAFINE
     Dates: start: 20140626, end: 20140627
  13. VITAMIN SUPPLEMENT [Concomitant]
     Active Substance: VITAMINS
     Dates: start: 20140814, end: 20140814
  14. BETAHISTINE [Concomitant]
     Active Substance: BETAHISTINE
     Dates: start: 20140908
  15. LANSOPRAZOLE. [Concomitant]
     Active Substance: LANSOPRAZOLE
     Dates: start: 20140908
  16. MACROGOL [Concomitant]
     Active Substance: POLYETHYLENE GLYCOLS
     Dates: start: 20140619, end: 20140717
  17. SPIRIVA [Concomitant]
     Active Substance: TIOTROPIUM BROMIDE MONOHYDRATE
     Dates: start: 20140519
  18. VITAMIN SUPPLEMENT [Concomitant]
     Active Substance: VITAMINS
     Dates: start: 20140908
  19. ALENDRONIC ACID [Concomitant]
     Active Substance: ALENDRONIC ACID
     Dates: start: 20140908
  20. AMITRIPTYLINE HYDROCHLORIDE. [Concomitant]
     Active Substance: AMITRIPTYLINE HYDROCHLORIDE
     Dates: start: 20140908
  21. DEPO-MEDRONE [Concomitant]
     Active Substance: METHYLPREDNISOLONE
     Dates: start: 20140807, end: 20140808
  22. LANSOPRAZOLE. [Concomitant]
     Active Substance: LANSOPRAZOLE
     Dates: start: 20140619, end: 20140619
  23. MOVELAT [Concomitant]
     Dates: start: 20140619, end: 20140619
  24. ORAMORPH SR SUSTAINED RELEASE [Concomitant]
     Active Substance: MORPHINE SULFATE
     Dates: start: 20140619, end: 20140620
  25. VITAMIN SUPPLEMENT [Concomitant]
     Active Substance: VITAMINS
     Dates: start: 20140714, end: 20140714
  26. NITROFURANTOIN. [Suspect]
     Active Substance: NITROFURANTOIN
  27. AMITRIPTYLINE HYDROCHLORIDE. [Concomitant]
     Active Substance: AMITRIPTYLINE HYDROCHLORIDE
     Dates: start: 20140619, end: 20140619
  28. AMITRIPTYLINE HYDROCHLORIDE. [Concomitant]
     Active Substance: AMITRIPTYLINE HYDROCHLORIDE
     Dates: start: 20140714, end: 20140714
  29. HYDROXOCOBALAMIN [Concomitant]
     Active Substance: HYDROXOCOBALAMIN
     Dates: start: 20131230
  30. LEVOTHYROXINE [Concomitant]
     Active Substance: LEVOTHYROXINE
     Dates: start: 20140714, end: 20140714
  31. MEBEVERINE HYDROCHLORIDE [Concomitant]
     Active Substance: MEBEVERINE HYDROCHLORIDE
     Dates: start: 20140619, end: 20140619
  32. ALENDRONIC ACID [Concomitant]
     Active Substance: ALENDRONIC ACID
     Dates: start: 20140619, end: 20140619
  33. ALENDRONIC ACID [Concomitant]
     Active Substance: ALENDRONIC ACID
     Dates: start: 20140714, end: 20140714
  34. ALLOPURINOL. [Concomitant]
     Active Substance: ALLOPURINOL
     Dates: start: 20140908
  35. ANACAL [Concomitant]
     Dates: start: 20140815, end: 20140815
  36. BETAHISTINE [Concomitant]
     Active Substance: BETAHISTINE
     Dates: start: 20140619, end: 20140619
  37. LANSOPRAZOLE. [Concomitant]
     Active Substance: LANSOPRAZOLE
     Dates: start: 20140814, end: 20140814
  38. LEVOTHYROXINE [Concomitant]
     Active Substance: LEVOTHYROXINE
     Dates: start: 20140908
  39. MEBEVERINE HYDROCHLORIDE [Concomitant]
     Active Substance: MEBEVERINE HYDROCHLORIDE
     Dates: start: 20140908
  40. PHYLLOCONTIN [Concomitant]
     Active Substance: AMINOPHYLLINE
     Dates: start: 20140519
  41. SERETIDE [Concomitant]
     Active Substance: FLUTICASONE FUROATE\SALMETEROL XINAFOATE
     Dates: start: 20140519
  42. MUCODYNE [Concomitant]
     Active Substance: CARBOCYSTEINE
     Dates: start: 20140519
  43. PREDNISOLONE. [Concomitant]
     Active Substance: PREDNISOLONE
     Dates: start: 20140731, end: 20140801
  44. SALBUTAMOL [Concomitant]
     Active Substance: ALBUTEROL
     Dates: start: 20140519
  45. ZOMORPH [Concomitant]
     Active Substance: MORPHINE SULFATE
     Dates: start: 20140519
  46. ALLOPURINOL. [Concomitant]
     Active Substance: ALLOPURINOL
     Dates: start: 20140814, end: 20140814
  47. ALLOPURINOL. [Concomitant]
     Active Substance: ALLOPURINOL
     Dates: start: 20140619, end: 20140619
  48. BETAHISTINE [Concomitant]
     Active Substance: BETAHISTINE
     Dates: start: 20140714, end: 20140714
  49. LANSOPRAZOLE. [Concomitant]
     Active Substance: LANSOPRAZOLE
     Dates: start: 20140714, end: 20140714
  50. VITAMIN SUPPLEMENT [Concomitant]
     Active Substance: VITAMINS
     Dates: start: 20140619, end: 20140619

REACTIONS (1)
  - Somnolence [Recovered/Resolved]

NARRATIVE: CASE EVENT DATE: 20140911
